FAERS Safety Report 13670380 (Version 1)
Quarter: 2017Q2

REPORT INFORMATION
  Report Type: Spontaneous
  Country: CN (occurrence: CN)
  Receive Date: 20170620
  Receipt Date: 20170620
  Transmission Date: 20170830
  Serious: Yes (Life-Threatening, Hospitalization)
  Sender: FDA-Public Use
  Company Number: CN-NAPPMUNDI-GBR-2017-0046017

PATIENT
  Age: 77 Year
  Sex: Male
  Weight: 56 kg

DRUGS (1)
  1. MS CONTIN [Suspect]
     Active Substance: MORPHINE SULFATE
     Indication: ANALGESIC THERAPY
     Dosage: 90 MG, Q12H
     Route: 048
     Dates: end: 20170306

REACTIONS (4)
  - Leukocytosis [Unknown]
  - Back pain [Unknown]
  - Overdose [Not Recovered/Not Resolved]
  - Hypokalaemia [Unknown]

NARRATIVE: CASE EVENT DATE: 201702
